FAERS Safety Report 8131336-9 (Version None)
Quarter: 2012Q1

REPORT INFORMATION
  Report Type: 
  Country: None (occurrence: None)
  Receive Date: 20120213
  Receipt Date: 20120202
  Transmission Date: 20120608
  Serious: Yes (Other)
  Sender: FDA-Public Use
  Company Number: FR-BRISTOL-MYERS SQUIBB COMPANY-15408750

PATIENT
  Age: 25 Year
  Sex: Female
  Weight: 78 kg

DRUGS (1)
  1. BARACLUDE [Suspect]
     Indication: HEPATITIS B
     Route: 048
     Dates: start: 20100501, end: 20101001

REACTIONS (4)
  - PREGNANCY [None]
  - RUBELLA IN PREGNANCY [None]
  - ALOPECIA [None]
  - TOXOPLASMA SEROLOGY POSITIVE [None]
